FAERS Safety Report 5818359-7 (Version None)
Quarter: 2008Q3

REPORT INFORMATION
  Report Type: 
  Country: None (occurrence: None)
  Receive Date: 20080716
  Receipt Date: 20080704
  Transmission Date: 20090109
  Serious: Yes (Death, Other)
  Sender: FDA-Public Use
  Company Number: 2008BI017139

PATIENT
  Age: 60 Year
  Sex: Female

DRUGS (8)
  1. ZEVALIN [Suspect]
     Indication: NON-HODGKIN'S LYMPHOMA
     Dosage: ; IV
     Route: 042
     Dates: start: 20070101, end: 20070101
  2. RITUXIMAB [Concomitant]
  3. ANTIBIOTICS [Concomitant]
  4. ANTIFUNGAL (NOS) [Concomitant]
  5. ETOPOSIDE [Concomitant]
  6. CYTARABINE [Concomitant]
  7. MELPHALAN [Concomitant]
  8. CARMUSTINE [Concomitant]

REACTIONS (4)
  - ABDOMINAL DISTENSION [None]
  - ASPIRATION [None]
  - DIARRHOEA [None]
  - VOMITING [None]
